FAERS Safety Report 5545510-9 (Version None)
Quarter: 2007Q4

REPORT INFORMATION
  Report Type: 
  Country: None (occurrence: None)
  Receive Date: 20071206
  Receipt Date: 20071130
  Transmission Date: 20080405
  Serious: Yes (Other)
  Sender: FDA-Public Use
  Company Number: 2007SP020818

PATIENT
  Age: 75 Year
  Sex: Male
  Weight: 70 kg

DRUGS (14)
  1. CELESTAMINE TAB [Suspect]
     Indication: COUGH
     Dosage: 2 DF; PO
     Route: 048
     Dates: start: 20071006, end: 20071006
  2. CELESTAMINE TAB [Suspect]
     Indication: NASOPHARYNGITIS
     Dosage: 2 DF; PO
     Route: 048
     Dates: start: 20071006, end: 20071006
  3. KLARICID [Concomitant]
  4. CALONAL [Concomitant]
  5. THEOLONG [Concomitant]
  6. CYSTEINE HYDROCHLORIDE [Concomitant]
  7. SPIROPENT [Concomitant]
  8. HOKUNALIN [Concomitant]
  9. ADECUT [Concomitant]
  10. ZYLORIC [Concomitant]
  11. NATRIX [Concomitant]
  12. ZANTAC [Concomitant]
  13. LAC B [Concomitant]
  14. HARNAL D [Concomitant]

REACTIONS (7)
  - CONTUSION [None]
  - COUGH [None]
  - DYSPNOEA [None]
  - EYE INJURY [None]
  - FALL [None]
  - HEAD INJURY [None]
  - SYNCOPE [None]
